FAERS Safety Report 17922888 (Version 2)
Quarter: 2020Q2

REPORT INFORMATION
  Report Type: Spontaneous
  Country: US (occurrence: US)
  Receive Date: 20200622
  Receipt Date: 20200624
  Transmission Date: 20200714
  Serious: No
  Sender: FDA-Public Use
  Company Number: US-PFIZER INC-2020239498

PATIENT
  Age: 77 Year
  Sex: Female
  Weight: 60.33 kg

DRUGS (1)
  1. PREMARIN [Suspect]
     Active Substance: ESTROGENS, CONJUGATED
     Dosage: UNK (ONCE OR TWICE A WEEK, 0.5 GRAMS OR WHATEVER IT IS)

REACTIONS (3)
  - Off label use [Unknown]
  - Vulvovaginal burning sensation [Unknown]
  - Vaginal infection [Unknown]
